FAERS Safety Report 9349060 (Version 1)
Quarter: 2013Q2

REPORT INFORMATION
  Report Type: Spontaneous
  Country: US (occurrence: US)
  Receive Date: 20130614
  Receipt Date: 20130614
  Transmission Date: 20140414
  Serious: Yes (Other)
  Sender: FDA-Public Use
  Company Number: US-ELI_LILLY_AND_COMPANY-US201306004331

PATIENT
  Sex: Female

DRUGS (1)
  1. FORTEO [Suspect]
     Indication: FRACTURE DELAYED UNION

REACTIONS (4)
  - Hip fracture [Unknown]
  - Memory impairment [Unknown]
  - Fracture delayed union [Unknown]
  - Off label use [Unknown]
